FAERS Safety Report 5668168-7 (Version None)
Quarter: 2008Q1

REPORT INFORMATION
  Report Type: 
  Country: None (occurrence: None)
  Receive Date: 20080315
  Receipt Date: 20080215
  Transmission Date: 20080703
  Serious: No
  Sender: FDA-Public Use
  Company Number: US-ABBOTT-08P-163-0438682-00

PATIENT
  Sex: Female
  Weight: 91.708 kg

DRUGS (1)
  1. HUMIRA [Suspect]
     Indication: CROHN'S DISEASE
     Route: 058
     Dates: start: 20080116

REACTIONS (8)
  - ARTHRALGIA [None]
  - CHEST PAIN [None]
  - DIZZINESS POSTURAL [None]
  - DYSSTASIA [None]
  - HEADACHE [None]
  - JOINT STIFFNESS [None]
  - PAIN IN JAW [None]
  - SENSATION OF HEAVINESS [None]
